FAERS Safety Report 18418800 (Version 3)
Quarter: 2021Q1

REPORT INFORMATION
  Report Type: Spontaneous
  Country: US (occurrence: US)
  Receive Date: 20201023
  Receipt Date: 20210108
  Transmission Date: 20210419
  Serious: No
  Sender: FDA-Public Use
  Company Number: US-SA-2020SA299083

PATIENT

DRUGS (3)
  1. BENADRYL [Concomitant]
     Active Substance: DIPHENHYDRAMINE HYDROCHLORIDE
  2. DUPIXENT [Suspect]
     Active Substance: DUPILUMAB
     Indication: DERMATITIS ATOPIC
     Dosage: 400 MG, 1X
     Dates: start: 20201020, end: 20201020
  3. ATARAX [ALPRAZOLAM] [Concomitant]
     Active Substance: ALPRAZOLAM

REACTIONS (9)
  - Dark circles under eyes [Unknown]
  - Pollakiuria [Unknown]
  - Product use issue [Unknown]
  - Restlessness [Unknown]
  - Injection site pain [Unknown]
  - Therapeutic response decreased [Unknown]
  - Pruritus [Unknown]
  - Insomnia [Unknown]
  - Urine viscosity increased [Unknown]

NARRATIVE: CASE EVENT DATE: 202010
